FAERS Safety Report 18253335 (Version 2)
Quarter: 2020Q4

REPORT INFORMATION
  Report Type: Spontaneous
  Country: US (occurrence: US)
  Receive Date: 20200910
  Receipt Date: 20201029
  Transmission Date: 20210113
  Serious: Yes (Other)
  Sender: FDA-Public Use
  Company Number: US-TEVA-2020-US-1827069

PATIENT
  Age: 56 Year
  Sex: Male

DRUGS (17)
  1. AMITRIPTYLINE HCL [Concomitant]
     Active Substance: AMITRIPTYLINE
     Indication: OSTEOARTHRITIS
     Dosage: 25 MILLIGRAM DAILY; AT NIGHT
     Dates: start: 20130227, end: 2017
  2. AMITRIPTYLINE HCL [Concomitant]
     Active Substance: AMITRIPTYLINE
     Dosage: 10 MILLIGRAM DAILY; AT NIGHT
     Dates: start: 20130227, end: 2017
  3. TELMISARTAN. [Concomitant]
     Active Substance: TELMISARTAN
  4. METOPROLOL SUCCINATE ER [Concomitant]
     Active Substance: METOPROLOL SUCCINATE
     Indication: HYPERTENSION
     Dosage: 50 MILLIGRAM DAILY;
     Dates: start: 20100122, end: 20161218
  5. NISOLDIPINE ER [Concomitant]
     Active Substance: NISOLDIPINE
     Indication: HYPERTENSION
     Dosage: 40 MILLIGRAM DAILY;
     Dates: start: 20100217, end: 20150216
  6. VALSARTAN/HYDROCHLOROTHIAZIDE SOLCO [Suspect]
     Active Substance: HYDROCHLOROTHIAZIDE\VALSARTAN
     Indication: HYPERTENSION
     Dosage: 160-25 MG TABLETS
     Route: 065
     Dates: start: 20170130, end: 20171101
  7. OMEPRAZOLE DR [Concomitant]
     Active Substance: OMEPRAZOLE
     Indication: GASTROOESOPHAGEAL REFLUX DISEASE
     Dosage: 40 MILLIGRAM DAILY;
     Dates: start: 20140903, end: 20161111
  8. FUROSEMIDE. [Concomitant]
     Active Substance: FUROSEMIDE
  9. VALSARTAN/HYDROCHLOROTHIAZIDE AUROBINDO [Suspect]
     Active Substance: HYDROCHLOROTHIAZIDE\VALSARTAN
     Indication: HYPERTENSION
     Dosage: 160-25 MG TABLETS
     Route: 065
     Dates: start: 20150728, end: 20170130
  10. VALSARTAN/HYDROCHLOROTHIAZIDE SOLCO [Suspect]
     Active Substance: HYDROCHLOROTHIAZIDE\VALSARTAN
     Dosage: 160-25 MG TABLETS
     Route: 065
     Dates: start: 20171101, end: 20180718
  11. MIRALAX [Concomitant]
     Active Substance: POLYETHYLENE GLYCOL 3350
     Indication: CONSTIPATION
  12. VALSARTAN W/HYDROCHLOROTHIAZIDE MYLAN [Suspect]
     Active Substance: HYDROCHLOROTHIAZIDE\VALSARTAN
     Indication: HYPERTENSION
     Dosage: DOSAGE: 160-25MG TABLETS
     Route: 065
     Dates: start: 20140919, end: 20150713
  13. NISOLDIPINE ER [Concomitant]
     Active Substance: NISOLDIPINE
  14. METFORMIN HCL [Concomitant]
     Active Substance: METFORMIN HYDROCHLORIDE
     Indication: DIABETES MELLITUS
     Dosage: 500 MILLIGRAM DAILY;
     Dates: start: 20120921, end: 2019
  15. TIZANIDINE HCL [Concomitant]
     Active Substance: TIZANIDINE HYDROCHLORIDE
     Indication: MUSCLE RELAXANT THERAPY
     Dosage: 8 MILLIGRAM DAILY;
     Dates: start: 20140716, end: 20160922
  16. FLOMAX [Concomitant]
     Active Substance: TAMSULOSIN HYDROCHLORIDE
  17. NISOLDIPINE. [Concomitant]
     Active Substance: NISOLDIPINE

REACTIONS (1)
  - Prostate cancer [Unknown]
